FAERS Safety Report 20259893 (Version 1)
Quarter: 2021Q4

REPORT INFORMATION
  Report Type: Spontaneous
  Country: US (occurrence: None)
  Receive Date: 20211230
  Receipt Date: 20211230
  Transmission Date: 20220304
  Serious: Yes (Other)
  Sender: FDA-Public Use
  Company Number: 2021A893012

PATIENT
  Age: 28625 Day
  Sex: Female

DRUGS (1)
  1. BRILINTA [Suspect]
     Active Substance: TICAGRELOR
     Indication: Vascular device user
     Dosage: 2 DAYS90.0MG UNKNOWN
     Route: 048
     Dates: start: 20211216, end: 20211216

REACTIONS (2)
  - Vascular occlusion [Unknown]
  - Contusion [Unknown]

NARRATIVE: CASE EVENT DATE: 20211216
